FAERS Safety Report 7361951-1 (Version None)
Quarter: 2011Q1

REPORT INFORMATION
  Report Type: 
  Country: None (occurrence: None)
  Receive Date: 20110318
  Receipt Date: 20110314
  Transmission Date: 20110831
  Serious: Yes (Death, Other)
  Sender: FDA-Public Use
  Company Number: PHHY2011US21151

PATIENT

DRUGS (10)
  1. MESNA [Suspect]
     Route: 064
  2. ETOPOSIDE [Suspect]
     Route: 064
  3. CYTARABINE [Suspect]
     Route: 064
  4. RITUXIMAB [Suspect]
     Route: 064
  5. PREDNISONE [Suspect]
     Route: 064
  6. CYCLOPHOSPHAMIDE [Suspect]
     Route: 064
  7. DOXORUBICIN HCL [Suspect]
     Route: 064
  8. IFOSFAMIDE [Suspect]
     Dosage: UNK
     Route: 064
  9. VINCRISTINE [Suspect]
     Route: 064
  10. CYTARABINE [Suspect]
     Route: 064

REACTIONS (8)
  - AMNIOTIC FLUID VOLUME DECREASED [None]
  - PREGNANCY [None]
  - STILLBIRTH [None]
  - FOETAL HEART RATE ABNORMAL [None]
  - DRUG EXPOSURE DURING PREGNANCY [None]
  - FOETAL HYPOKINESIA [None]
  - PREMATURE BABY [None]
  - FOETAL GROWTH RESTRICTION [None]
